FAERS Safety Report 20856687 (Version 1)
Quarter: 2022Q2

REPORT INFORMATION
  Report Type: Spontaneous
  Country: US (occurrence: US)
  Receive Date: 20220520
  Receipt Date: 20220520
  Transmission Date: 20220721
  Serious: Yes (Other)
  Sender: FDA-Public Use
  Company Number: US-SA-SAC20220513000092

PATIENT
  Sex: Male

DRUGS (7)
  1. AUBAGIO [Suspect]
     Active Substance: TERIFLUNOMIDE
     Indication: Multiple sclerosis
     Dosage: 14 MG, QD
     Route: 048
     Dates: start: 202105
  2. ASPIRIN [Concomitant]
     Active Substance: ASPIRIN
  3. GABAPENTIN [Concomitant]
     Active Substance: GABAPENTIN
  4. PREGABALIN [Concomitant]
     Active Substance: PREGABALIN
  5. MELOXICAM [Concomitant]
     Active Substance: MELOXICAM
  6. BUPROPION HYDROCHLORIDE [Concomitant]
     Active Substance: BUPROPION HYDROCHLORIDE
  7. ATORVASTATIN CALCIUM [Concomitant]
     Active Substance: ATORVASTATIN CALCIUM

REACTIONS (1)
  - Neuropathy peripheral [Unknown]
